FAERS Safety Report 14539746 (Version 25)
Quarter: 2020Q4

REPORT INFORMATION
  Report Type: Spontaneous
  Country: DE (occurrence: DE)
  Receive Date: 20180216
  Receipt Date: 20201229
  Transmission Date: 20210113
  Serious: Yes (Hospitalization, Other)
  Sender: FDA-Public Use
  Company Number: DE-AUROBINDO-AUR-APL-2018-007688

PATIENT
  Age: 75 Year
  Sex: Male
  Weight: 81 kg

DRUGS (59)
  1. DENOSUMAB [Suspect]
     Active Substance: DENOSUMAB
     Indication: OSTEOPOROSIS
     Dosage: 60 MILLIGRAM, EVERY 6 MONTHS
     Route: 058
     Dates: start: 201405
  2. ROACTEMRA [Suspect]
     Active Substance: TOCILIZUMAB
     Dosage: 324 MILLIGRAM, 12 DAY
     Route: 058
     Dates: start: 20150706, end: 20171025
  3. ROACTEMRA [Suspect]
     Active Substance: TOCILIZUMAB
     Dosage: 162 MILLIGRAM, ONCE A DAY (DAILY DOSE: 162 MG MILLGRAM(S) EVERY WEEKS)
     Route: 058
     Dates: start: 20190227, end: 20190327
  4. TOCILIZUMAB. [Suspect]
     Active Substance: TOCILIZUMAB
     Dosage: 162 MG, UNK, EVERY 10 DAYS
     Route: 058
  5. ESCITALOPRAM [Concomitant]
     Active Substance: ESCITALOPRAM OXALATE
     Indication: PRODUCT USED FOR UNKNOWN INDICATION
     Dosage: 10 GTT DROPS, ONCE A DAY
     Route: 048
  6. ROACTEMRA [Suspect]
     Active Substance: TOCILIZUMAB
     Indication: RHEUMATOID ARTHRITIS
     Dosage: 324 MILLIGRAM, ONCE A DAY
     Route: 058
  7. ROACTEMRA [Suspect]
     Active Substance: TOCILIZUMAB
     Dosage: 324 MILLIGRAM, ONCE A DAY (162 MG, BID)
     Route: 058
     Dates: start: 201506
  8. ROACTEMRA [Suspect]
     Active Substance: TOCILIZUMAB
     Dosage: 162 MILLIGRAM, 0.5 DAY
     Route: 058
     Dates: start: 201506
  9. ROACTEMRA [Suspect]
     Active Substance: TOCILIZUMAB
     Dosage: 162 MILLIGRAM, EVERY 14 DAYS
     Route: 058
     Dates: start: 201704, end: 20171025
  10. ROACTEMRA [Suspect]
     Active Substance: TOCILIZUMAB
     Dosage: 162 MILLIGRAM, ONCE A DAY
     Route: 058
     Dates: start: 20180414
  11. ROACTEMRA [Suspect]
     Active Substance: TOCILIZUMAB
     Dosage: 162 MILLIGRAM ,10 DAYS
     Route: 058
     Dates: start: 20180414
  12. ROACTEMRA [Suspect]
     Active Substance: TOCILIZUMAB
     Dosage: 162 MILLIGRAM, 12 DAYS
     Route: 058
     Dates: start: 201904
  13. ROACTEMRA [Suspect]
     Active Substance: TOCILIZUMAB
     Dosage: 162 MILLIGRAM, 7 DAY
     Route: 058
     Dates: start: 20190227, end: 20190327
  14. TOCILIZUMAB. [Suspect]
     Active Substance: TOCILIZUMAB
     Indication: MYALGIA
     Dosage: 162 MILLIGRAM, ONCE A DAY
     Route: 058
     Dates: end: 201506
  15. TOCILIZUMAB. [Suspect]
     Active Substance: TOCILIZUMAB
     Dosage: 162 MILLIGRAM, TWO TIMES A DAY (BID)
     Route: 058
  16. TOCILIZUMAB. [Suspect]
     Active Substance: TOCILIZUMAB
     Dosage: 324 MILLIGRAM, ONCE A DAY (162 MG, UNK, EVERY 10 DAYS)
     Route: 058
     Dates: start: 20140601, end: 201506
  17. TOCILIZUMAB. [Suspect]
     Active Substance: TOCILIZUMAB
     Dosage: 324 MILLIGRAM, ONCE A DAY
     Route: 058
  18. ROACTEMRA [Suspect]
     Active Substance: TOCILIZUMAB
     Dosage: 162 MILLIGRAM, 9 DAY
     Route: 058
     Dates: start: 202008
  19. TOCILIZUMAB. [Suspect]
     Active Substance: TOCILIZUMAB
     Dosage: 162 MILLIGRAM, ONCE A DAY
     Route: 058
  20. ESCITALOPRAM [Concomitant]
     Active Substance: ESCITALOPRAM OXALATE
     Dosage: 5 GTT DROPS
     Route: 048
  21. NADROPARIN CALCIUM [Suspect]
     Active Substance: NADROPARIN CALCIUM
     Indication: VENOUS THROMBOSIS LIMB
     Dosage: UNK
     Route: 065
  22. ROACTEMRA [Suspect]
     Active Substance: TOCILIZUMAB
     Indication: GIANT CELL ARTERITIS
     Dosage: 162 MILLIGRAM, 18 DAY
     Route: 058
  23. ROACTEMRA [Suspect]
     Active Substance: TOCILIZUMAB
     Dosage: 162 MILLIGRAM, 9 DAY
     Route: 058
     Dates: start: 20190328, end: 20190404
  24. TOCILIZUMAB. [Suspect]
     Active Substance: TOCILIZUMAB
     Dosage: 324 MILLIGRAM, EVERY 12 DAYS
     Route: 058
     Dates: start: 20150706, end: 20171025
  25. TOCILIZUMAB. [Suspect]
     Active Substance: TOCILIZUMAB
     Dosage: 162 MILLIGRAM, TWO TIMES A DAY (BID)
     Route: 058
     Dates: start: 201904
  26. TOCILIZUMAB. [Suspect]
     Active Substance: TOCILIZUMAB
     Dosage: 324 MILLIGRAM, ONCE A DAY
     Route: 058
     Dates: start: 201506
  27. CORTISONE ACETATE. [Concomitant]
     Active Substance: CORTISONE ACETATE
     Indication: PRODUCT USED FOR UNKNOWN INDICATION
     Dosage: 10 MILLIGRAM, UNK
     Route: 065
  28. COLECALCIFEROL [Suspect]
     Active Substance: CHOLECALCIFEROL
     Indication: OSTEOPOROSIS
     Dosage: 1000 INTERNATIONAL UNIT, UNK
     Route: 048
     Dates: start: 201204
  29. ROACTEMRA [Suspect]
     Active Substance: TOCILIZUMAB
     Dosage: 324 MILLIGRAM, ONCE A DAY
     Route: 058
     Dates: start: 20140601, end: 201506
  30. ROACTEMRA [Suspect]
     Active Substance: TOCILIZUMAB
     Dosage: 162 MILLIGRAM, 3 WEEK
     Route: 058
     Dates: start: 201811
  31. ROACTEMRA [Suspect]
     Active Substance: TOCILIZUMAB
     Dosage: 162 MILLIGRAM, EVERY WEEK
     Route: 058
     Dates: start: 202005
  32. TOCILIZUMAB. [Suspect]
     Active Substance: TOCILIZUMAB
     Indication: VASCULITIS
     Dosage: 324 MILLIGRAM, ONCE A DAY (162 MG, BID)
     Route: 058
     Dates: start: 20180131
  33. TOCILIZUMAB. [Suspect]
     Active Substance: TOCILIZUMAB
     Dosage: 162 MILLIGRAM, TWO TIMES A DAY (BID)
     Route: 058
  34. TOCILIZUMAB. [Suspect]
     Active Substance: TOCILIZUMAB
     Dosage: 162 MILLIGRAM, 3 WEEK
     Route: 058
     Dates: start: 201811
  35. TOCILIZUMAB. [Suspect]
     Active Substance: TOCILIZUMAB
     Dosage: 162 MG, EVERY 14 DAYS
     Route: 058
     Dates: start: 20180414
  36. TOCILIZUMAB. [Suspect]
     Active Substance: TOCILIZUMAB
     Dosage: 162 MILLIGRAM FOR 3 WEEK
     Route: 058
     Dates: start: 201811
  37. TOCILIZUMAB. [Suspect]
     Active Substance: TOCILIZUMAB
     Dosage: 324 MILLIGRAM, ONCE A DAY (162 MG, UNK, EVERY 10 DAYS)
     Route: 058
     Dates: start: 20180414
  38. TOCILIZUMAB. [Suspect]
     Active Substance: TOCILIZUMAB
     Dosage: 162 MILLIGRAM, FOR 7 DAYS
     Route: 058
     Dates: start: 20190227, end: 20190327
  39. ESCITALOPRAM [Concomitant]
     Active Substance: ESCITALOPRAM OXALATE
     Dosage: 8 GTT DROPS
     Route: 048
  40. AMLODIPIN [Concomitant]
     Active Substance: AMLODIPINE BESYLATE
     Indication: PRODUCT USED FOR UNKNOWN INDICATION
     Dosage: 2.5 MILLIGRAM, ONCE A DAY
     Route: 065
  41. QUETIAPINE FILM-COATED TABLET [Suspect]
     Active Substance: QUETIAPINE
     Indication: PRODUCT USED FOR UNKNOWN INDICATION
     Dosage: 25 MILLIGRAM, ONCE A DAY
     Route: 065
  42. ROACTEMRA [Suspect]
     Active Substance: TOCILIZUMAB
     Dosage: 162 MILLIGRAM, 0.5 DAY
     Route: 058
     Dates: start: 20140601, end: 201506
  43. ROACTEMRA [Suspect]
     Active Substance: TOCILIZUMAB
     Dosage: 162 MILLIGRAM, 14 DAY
     Route: 058
     Dates: start: 20150607
  44. TOCILIZUMAB. [Suspect]
     Active Substance: TOCILIZUMAB
     Indication: RHEUMATOID ARTHRITIS
     Dosage: 162 MILLIGRAM, EVERY WEEK
     Route: 058
     Dates: start: 20140601, end: 201506
  45. PROLIA [Suspect]
     Active Substance: DENOSUMAB
     Indication: OSTEOPOROSIS
     Dosage: 60 MILLIGRAM, EVERY 6 MONTHS
     Route: 058
     Dates: start: 201405
  46. TOCILIZUMAB. [Suspect]
     Active Substance: TOCILIZUMAB
     Dosage: 162 MG, EVERY 14 DAYS
     Route: 058
     Dates: start: 201704, end: 20171025
  47. TOCILIZUMAB. [Suspect]
     Active Substance: TOCILIZUMAB
     Dosage: 162 MILLIGRAM, ONCE A DAY
     Route: 058
     Dates: start: 20180131
  48. TOCILIZUMAB. [Suspect]
     Active Substance: TOCILIZUMAB
     Dosage: 648 MILLIGRAM
     Route: 058
     Dates: start: 20150706, end: 20171025
  49. PANTOPRAZOLE [Concomitant]
     Active Substance: PANTOPRAZOLE
     Indication: PRODUCT USED FOR UNKNOWN INDICATION
     Dosage: UNK
     Route: 065
  50. CLEXANE [Suspect]
     Active Substance: ENOXAPARIN SODIUM
     Indication: VENOUS THROMBOSIS LIMB
     Dosage: UNK
     Route: 065
     Dates: start: 201507
  51. FRAXIPARIN [Suspect]
     Active Substance: NADROPARIN CALCIUM
     Indication: VENOUS THROMBOSIS LIMB
     Dosage: UNK
     Route: 065
     Dates: start: 201507
  52. ROACTEMRA [Suspect]
     Active Substance: TOCILIZUMAB
     Indication: MYALGIA
     Dosage: 162 MILLIGRAM, ONCE A DAY
     Route: 058
  53. ROACTEMRA [Suspect]
     Active Substance: TOCILIZUMAB
     Indication: VASCULITIS
     Dosage: 162 MILLIGRAM, 14 DAYS
     Route: 058
     Dates: start: 20180414
  54. ROACTEMRA [Suspect]
     Active Substance: TOCILIZUMAB
     Dosage: 162 MILLIGRAM, ONCE A DAY
     Route: 058
     Dates: start: 20180131
  55. ROACTEMRA [Suspect]
     Active Substance: TOCILIZUMAB
     Dosage: 162 MILLIGRAM, TWO TIMES A DAY
     Route: 058
     Dates: start: 20190328, end: 20190404
  56. ROACTEMRA [Suspect]
     Active Substance: TOCILIZUMAB
     Dosage: 162 MILLIGRAM, 10 DAY
     Route: 058
     Dates: start: 202011
  57. TOCILIZUMAB. [Suspect]
     Active Substance: TOCILIZUMAB
     Dosage: 162 MILLIGRAM, FOR 9 DAYS
     Route: 058
     Dates: start: 20190328, end: 20190404
  58. LISIHEXAL [Concomitant]
     Active Substance: LISINOPRIL
     Indication: PRODUCT USED FOR UNKNOWN INDICATION
     Dosage: 20 MILLIGRAM, ONCE A DAY
     Route: 065
  59. AMLODIPIN [Concomitant]
     Active Substance: AMLODIPINE BESYLATE
     Dosage: 5 MILLIGRAM, ONCE A DAY
     Route: 065

REACTIONS (27)
  - Off label use [Unknown]
  - Hyperaesthesia [Unknown]
  - Dysuria [Unknown]
  - Prostate cancer [Recovered/Resolved]
  - Soft tissue disorder [Recovered/Resolved]
  - Erysipelas [Recovering/Resolving]
  - Lymphoedema [Recovered/Resolved]
  - Inappropriate schedule of product administration [Unknown]
  - Product use in unapproved indication [Unknown]
  - Sleep disorder [Unknown]
  - Sepsis [Recovering/Resolving]
  - Impaired healing [Recovered/Resolved]
  - Acetabulum fracture [Recovering/Resolving]
  - Eye inflammation [Recovering/Resolving]
  - Bronchitis [Recovered/Resolved]
  - Fall [Unknown]
  - Angioedema [Recovered/Resolved]
  - Lymphocele [Recovered/Resolved]
  - Platelet count decreased [Unknown]
  - Leukopenia [Recovered/Resolved]
  - Venous thrombosis limb [Not Recovered/Not Resolved]
  - Rash erythematous [Unknown]
  - C-reactive protein increased [Recovered/Resolved]
  - Wound dehiscence [Recovered/Resolved]
  - Suture rupture [Recovered/Resolved]
  - Depression [Not Recovered/Not Resolved]
  - Autoimmune disorder [Unknown]

NARRATIVE: CASE EVENT DATE: 201407
